FAERS Safety Report 9926931 (Version 1)
Quarter: 2014Q1

REPORT INFORMATION
  Report Type: Spontaneous
  Country: US (occurrence: US)
  Receive Date: 20140226
  Receipt Date: 20140226
  Transmission Date: 20141002
  Serious: No
  Sender: FDA-Public Use
  Company Number: US-AMGEN-USASP2013089569

PATIENT
  Age: 57 Year
  Sex: Male
  Weight: 126.98 kg

DRUGS (2)
  1. ENBREL [Suspect]
     Indication: PSORIATIC ARTHROPATHY
     Dosage: 50 MG, QWK
     Route: 058
     Dates: start: 201311
  2. ENBREL [Suspect]
     Indication: PSORIASIS

REACTIONS (2)
  - Injection site bruising [Unknown]
  - Injection site discolouration [Unknown]
